FAERS Safety Report 16044907 (Version 1)
Quarter: 2019Q1

REPORT INFORMATION
  Report Type: Spontaneous
  Country: CA (occurrence: CA)
  Receive Date: 20190307
  Receipt Date: 20190307
  Transmission Date: 20190418
  Serious: Yes (Hospitalization)
  Sender: FDA-Public Use
  Company Number: CA-JNJFOC-20190240736

PATIENT
  Age: 15 Year
  Sex: Female
  Weight: 45 kg

DRUGS (1)
  1. TYLENOL EXTRA STRENGTH [Suspect]
     Active Substance: ACETAMINOPHEN
     Indication: PRODUCT USED FOR UNKNOWN INDICATION
     Route: 065

REACTIONS (5)
  - Hypokalaemia [Unknown]
  - Nausea [Unknown]
  - Intentional overdose [Unknown]
  - Vomiting [Unknown]
  - Prothrombin time prolonged [Unknown]
